FAERS Safety Report 6179459-8 (Version None)
Quarter: 2009Q2

REPORT INFORMATION
  Report Type: 
  Country: None (occurrence: None)
  Receive Date: 20090501
  Receipt Date: 20090501
  Transmission Date: 20091009
  Serious: Yes (Hospitalization)
  Sender: FDA-Public Use
  Company Number: None

PATIENT
  Age: 65 Year
  Sex: 0

DRUGS (1)
  1. ZYPREXA [Suspect]

REACTIONS (2)
  - DELIRIUM [None]
  - ENCEPHALOPATHY [None]
